FAERS Safety Report 4427413-6 (Version None)
Quarter: 2004Q3

REPORT INFORMATION
  Report Type: 
  Country: None (occurrence: None)
  Receive Date: 20040812
  Receipt Date: 20040730
  Transmission Date: 20050211
  Serious: Yes (Disabling, Other)
  Sender: FDA-Public Use
  Company Number: 2004040414

PATIENT
  Age: 55 Year
  Sex: Male
  Weight: 80 kg

DRUGS (1)
  1. CETIRIZINE HCL [Suspect]
     Indication: CONJUNCTIVITIS ALLERGIC
     Dosage: 10 MG (10 MG, 1 IN 1 D), ORAL
     Route: 048
     Dates: start: 20040608, end: 20040610

REACTIONS (7)
  - ANGINA PECTORIS [None]
  - CARDIAC DISORDER [None]
  - DISTURBANCE IN ATTENTION [None]
  - GASTROOESOPHAGEAL REFLUX DISEASE [None]
  - IMPAIRED DRIVING ABILITY [None]
  - MULTIPLE ALLERGIES [None]
  - PALPITATIONS [None]
